FAERS Safety Report 5570180-3 (Version None)
Quarter: 2007Q4

REPORT INFORMATION
  Report Type: 
  Country: None (occurrence: None)
  Receive Date: 20071220
  Receipt Date: 20071217
  Transmission Date: 20080405
  Serious: Yes (Life-Threatening, Hospitalization)
  Sender: FDA-Public Use
  Company Number: US-GILEAD-2007-0014664

PATIENT
  Sex: Male

DRUGS (15)
  1. TRUVADA [Suspect]
     Indication: HIV INFECTION
     Route: 048
     Dates: end: 20070825
  2. KALETRA [Concomitant]
     Indication: HIV INFECTION
     Route: 065
     Dates: end: 20070825
  3. PROZAC [Concomitant]
     Route: 065
  4. PAXIL [Concomitant]
     Route: 065
  5. DEPAKOTE [Concomitant]
     Route: 048
  6. DEPAKOTE [Concomitant]
     Route: 065
  7. KEPPRA [Concomitant]
     Route: 048
  8. KEPPRA [Concomitant]
     Route: 065
  9. NAPHOS [Concomitant]
     Route: 065
  10. NAPHOS [Concomitant]
     Route: 065
  11. CHOLECALCIFEROL [Concomitant]
     Route: 065
  12. CLONAZEPAM [Concomitant]
     Route: 048
  13. QUETIAPINE [Concomitant]
     Route: 048
  14. LOPERMIDE [Concomitant]
     Route: 065
  15. DOCUSATE [Concomitant]
     Route: 065

REACTIONS (2)
  - CONVULSION [None]
  - RESPIRATORY FAILURE [None]
